FAERS Safety Report 23425223 (Version 3)
Quarter: 2024Q2

REPORT INFORMATION
  Report Type: Spontaneous
  Country: BR (occurrence: BR)
  Receive Date: 20240121
  Receipt Date: 20240401
  Transmission Date: 20240716
  Serious: Yes (Other)
  Sender: FDA-Public Use
  Company Number: BR-NOVOPROD-1161306

PATIENT
  Age: 71 Year
  Sex: Male

DRUGS (2)
  1. NOVORAPID [Suspect]
     Active Substance: INSULIN ASPART
     Indication: Product used for unknown indication
     Dosage: UNK
  2. NOVORAPID [Suspect]
     Active Substance: INSULIN ASPART
     Dosage: UNK

REACTIONS (5)
  - Hypoglycaemic seizure [Unknown]
  - Device occlusion [Unknown]
  - Device delivery system issue [Unknown]
  - Product quality issue [Unknown]
  - Product storage error [Unknown]
